FAERS Safety Report 8493491-0 (Version None)
Quarter: 2012Q2

REPORT INFORMATION
  Report Type: 
  Country: None (occurrence: None)
  Receive Date: 20120402
  Receipt Date: 20090911
  Transmission Date: 20120825
  Serious: Yes (Hospitalization)
  Sender: FDA-Public Use
  Company Number: PHEH2009US09177

PATIENT
  Sex: Female

DRUGS (12)
  1. LABETALOL HCL [Concomitant]
  2. REQUIP [Concomitant]
  3. WARFARIN SODIUM [Concomitant]
  4. PRILOSEC [Concomitant]
  5. ALLOPURINOL [Concomitant]
  6. SINGULAIR [Concomitant]
  7. EXFORGE [Suspect]
     Indication: HYPERTENSION
     Dosage: 10/320,ORAL
     Route: 048
     Dates: start: 20090401, end: 20090518
  8. CRESTOR [Concomitant]
  9. TORSEMIDE [Concomitant]
  10. NEURONTIN [Concomitant]
  11. CLONIDINE [Concomitant]
  12. SYNTHROID [Concomitant]

REACTIONS (2)
  - OEDEMA PERIPHERAL [None]
  - WEIGHT INCREASED [None]
